FAERS Safety Report 9768145 (Version 2)
Quarter: 2014Q1

REPORT INFORMATION
  Report Type: Spontaneous
  Country: US (occurrence: US)
  Receive Date: 20131217
  Receipt Date: 20140129
  Transmission Date: 20141002
  Serious: Yes (Hospitalization)
  Sender: FDA-Public Use
  Company Number: US-GLAXOSMITHKLINE-A1053566A

PATIENT
  Sex: Female

DRUGS (20)
  1. ADVAIR HFA [Suspect]
     Indication: CHRONIC OBSTRUCTIVE PULMONARY DISEASE
     Dosage: 1PUFF TWICE PER DAY
     Route: 055
  2. VENTOLIN HFA [Suspect]
     Indication: ASTHMA
     Dosage: 2PUFF THREE TIMES PER DAY
     Route: 055
  3. BUPROPION [Concomitant]
  4. LORAZEPAM [Concomitant]
  5. HYDROXYZINE [Concomitant]
  6. METOPROLOL [Concomitant]
  7. LORTAB [Concomitant]
  8. CETIRIZINE [Concomitant]
  9. PROMETHAZINE [Concomitant]
  10. CITALOPRAM [Concomitant]
  11. ZOLPIDEM [Concomitant]
  12. LISINOPRIL [Concomitant]
  13. PREDNISONE [Concomitant]
  14. CARVEDILOL [Concomitant]
  15. OMEPRAZOLE [Concomitant]
  16. GABAPENTIN [Concomitant]
  17. LACTINEX [Concomitant]
  18. LIDOCAINE [Concomitant]
  19. ALBUTEROL [Concomitant]
  20. TRIAMCINOLONE CREAM [Concomitant]

REACTIONS (9)
  - Dementia [Unknown]
  - Staphylococcal infection [Unknown]
  - Skin bacterial infection [Unknown]
  - Memory impairment [Unknown]
  - Disturbance in attention [Unknown]
  - Dry skin [Unknown]
  - Impaired healing [Unknown]
  - Blood sodium increased [Unknown]
  - Blood sodium decreased [Unknown]
